FAERS Safety Report 23283830 (Version 1)
Quarter: 2023Q4

REPORT INFORMATION
  Report Type: Spontaneous
  Country: US (occurrence: US)
  Receive Date: 20231211
  Receipt Date: 20231211
  Transmission Date: 20240110
  Serious: Yes (Death, Life-Threatening, Other)
  Sender: FDA-Public Use
  Company Number: US-BRACCO-2023US06529

PATIENT
  Age: 65 Year
  Sex: Male

DRUGS (16)
  1. LUMASON [Suspect]
     Active Substance: SULFUR HEXAFLUORIDE
     Indication: Echocardiogram
     Dosage: 2 ML, SINGLE
     Route: 042
     Dates: start: 20231130, end: 20231130
  2. LUMASON [Suspect]
     Active Substance: SULFUR HEXAFLUORIDE
     Indication: Echocardiogram
     Dosage: 2 ML, SINGLE
     Route: 042
     Dates: start: 20231130, end: 20231130
  3. LUMASON [Suspect]
     Active Substance: SULFUR HEXAFLUORIDE
     Indication: Echocardiogram
     Dosage: 2 ML, SINGLE
     Route: 042
     Dates: start: 20231130, end: 20231130
  4. TYLENOL [Concomitant]
     Active Substance: ACETAMINOPHEN
  5. ALBUTEROL [Concomitant]
     Active Substance: ALBUTEROL
  6. ASPIRIN [Concomitant]
     Active Substance: ASPIRIN
  7. COREG [Concomitant]
     Active Substance: CARVEDILOL
  8. PLAVIX [Concomitant]
     Active Substance: CLOPIDOGREL BISULFATE
  9. FARXIGA [Concomitant]
     Active Substance: DAPAGLIFLOZIN PROPANEDIOL
  10. LEVOFLOXACIN [Concomitant]
     Active Substance: LEVOFLOXACIN
  11. ISOSORBIDE [Concomitant]
     Active Substance: ISOSORBIDE
  12. LISINOPRIL [Concomitant]
     Active Substance: LISINOPRIL
  13. PREDNISONE [Concomitant]
     Active Substance: PREDNISONE
  14. CRESTOR [Concomitant]
     Active Substance: ROSUVASTATIN CALCIUM
  15. ABREVA [Concomitant]
     Active Substance: DOCOSANOL
  16. LIPITOR [Concomitant]
     Active Substance: ATORVASTATIN CALCIUM

REACTIONS (1)
  - Pulseless electrical activity [Fatal]

NARRATIVE: CASE EVENT DATE: 20231130
